FAERS Safety Report 18056792 (Version 1)
Quarter: 2020Q3

REPORT INFORMATION
  Report Type: Spontaneous
  Country: CA (occurrence: CA)
  Receive Date: 20200722
  Receipt Date: 20200722
  Transmission Date: 20201103
  Serious: Yes (Hospitalization)
  Sender: FDA-Public Use
  Company Number: CA-TEVA-2020-CA-1802440

PATIENT
  Age: 83 Year
  Sex: Male
  Weight: 69 kg

DRUGS (13)
  1. CALCIUM + VITAMIN D [Concomitant]
     Active Substance: CALCIUM\VITAMIN D
  2. DEXILANT [Concomitant]
     Active Substance: DEXLANSOPRAZOLE
  3. LAX?A?DAY [Concomitant]
  4. MORPHINE [Concomitant]
     Active Substance: MORPHINE
  5. TEVA?PREGABALIN [Suspect]
     Active Substance: PREGABALIN
     Indication: PAIN
     Dosage: 50 MILLIGRAM DAILY;
     Route: 048
  6. DENOSUMAB [Concomitant]
     Active Substance: DENOSUMAB
  7. PREDNISONE. [Concomitant]
     Active Substance: PREDNISONE
  8. ASPIRIN. [Concomitant]
     Active Substance: ASPIRIN
  9. TRELSTAR MICROGRANULES FOR DEPOT SUSP. SLOW RELEASE [Concomitant]
  10. LIDOCAINE. [Concomitant]
     Active Substance: LIDOCAINE
  11. KETAMINE (UNKNOWN) [Concomitant]
     Active Substance: KETAMINE
  12. METOPROLOL. [Concomitant]
     Active Substance: METOPROLOL
  13. ZYTIGA [Concomitant]
     Active Substance: ABIRATERONE ACETATE

REACTIONS (1)
  - Immune-mediated myositis [Recovered/Resolved]
